FAERS Safety Report 4668073-9 (Version None)
Quarter: 2005Q2

REPORT INFORMATION
  Report Type: 
  Country: None (occurrence: None)
  Receive Date: 20050520
  Receipt Date: 20050131
  Transmission Date: 20051028
  Serious: Yes (Death, Hospitalization)
  Sender: FDA-Public Use
  Company Number: US-MERCK-0502USA00111

PATIENT
  Age: 79 Year
  Sex: Male
  Weight: 82 kg

DRUGS (15)
  1. AMIODARONE MSD [Concomitant]
     Route: 065
  2. PLAVIX [Concomitant]
     Indication: CARDIAC DISORDER
     Route: 065
  3. COZAAR [Concomitant]
     Indication: BLOOD PRESSURE
     Route: 065
  4. PHENAZOPYRIDINE HYDROCHLORIDE [Concomitant]
     Indication: ANALGESIC EFFECT
     Route: 065
  5. LEVAQUIN [Concomitant]
     Indication: INFECTION
     Route: 065
  6. LIPITOR [Concomitant]
     Route: 065
     Dates: end: 20030403
  7. ADVIL [Concomitant]
     Route: 065
     Dates: end: 20030403
  8. TYLENOL (CAPLET) [Concomitant]
     Route: 065
     Dates: end: 20030403
  9. VIOXX [Suspect]
     Indication: ARTHRITIS
     Route: 048
     Dates: start: 20010101, end: 20030401
  10. FLOMAX [Concomitant]
     Indication: BLOOD PRESSURE
     Route: 065
     Dates: end: 20030403
  11. FUROSEMIDE [Concomitant]
     Route: 065
  12. TOPROL-XL [Concomitant]
     Indication: BLOOD PRESSURE
     Route: 065
  13. ZOCOR [Concomitant]
     Indication: BLOOD CHOLESTEROL INCREASED
     Route: 065
     Dates: end: 20030403
  14. DIGOXIN [Concomitant]
     Indication: CARDIAC DISORDER
     Route: 065
     Dates: end: 20030403
  15. POTASSIUM CHLORIDE [Concomitant]
     Indication: BLOOD POTASSIUM DECREASED
     Route: 065

REACTIONS (6)
  - ANXIETY [None]
  - CARDIAC FAILURE CONGESTIVE [None]
  - MYOCARDIAL INFARCTION [None]
  - OEDEMA PERIPHERAL [None]
  - PNEUMONIA [None]
  - PROSTATE CANCER [None]
